FAERS Safety Report 5598361-3 (Version None)
Quarter: 2008Q1

REPORT INFORMATION
  Report Type: 
  Country: None (occurrence: None)
  Receive Date: 20080122
  Receipt Date: 20080116
  Transmission Date: 20080703
  Serious: Yes (Hospitalization)
  Sender: FDA-Public Use
  Company Number: IN-AVENTIS-200810615GDDC

PATIENT
  Age: 45 Year
  Sex: Female
  Weight: 110 kg

DRUGS (1)
  1. TAXOTERE [Suspect]
     Indication: BREAST CANCER
     Dosage: DOSE: UNK
     Route: 042

REACTIONS (5)
  - DIARRHOEA [None]
  - HYPOVOLAEMIC SHOCK [None]
  - MUCOSAL INFLAMMATION [None]
  - RENAL FAILURE ACUTE [None]
  - VOMITING [None]
